FAERS Safety Report 5364144-2 (Version None)
Quarter: 2007Q2

REPORT INFORMATION
  Report Type: 
  Country: None (occurrence: None)
  Receive Date: 20070620
  Receipt Date: 20070607
  Transmission Date: 20071010
  Serious: Yes (Hospitalization, Other)
  Sender: FDA-Public Use
  Company Number: US-ELI_LILLY_AND_COMPANY-US200702000776

PATIENT
  Age: 60 Year
  Sex: Female

DRUGS (3)
  1. FORTEO [Suspect]
     Indication: BONE DISORDER
     Dates: start: 20030401, end: 20050401
  2. FORTEO [Suspect]
     Dosage: UNK, UNK
     Dates: start: 20070119
  3. BYETTA [Concomitant]

REACTIONS (5)
  - DEVICE BREAKAGE [None]
  - FALL [None]
  - FEMUR FRACTURE [None]
  - LIMB INJURY [None]
  - STRESS FRACTURE [None]
